FAERS Safety Report 17268741 (Version 1)
Quarter: 2020Q1

REPORT INFORMATION
  Report Type: Report from Study
  Country: US (occurrence: US)
  Receive Date: 20200114
  Receipt Date: 20200114
  Transmission Date: 20200409
  Serious: Yes (Other)
  Sender: FDA-Public Use
  Company Number: US-TEVA-2020-US-1166544

PATIENT
  Age: 59 Year
  Sex: Female

DRUGS (1)
  1. COPAXONE [Suspect]
     Active Substance: GLATIRAMER ACETATE
     Dosage: FORM STRENGTH AND UNIT DOSE UNKNOWN
     Route: 065

REACTIONS (9)
  - Injection site necrosis [Unknown]
  - Skin lesion [Recovered/Resolved]
  - Swelling [Recovered/Resolved]
  - Injection site mass [Unknown]
  - Injection site scab [Recovered/Resolved]
  - Injection site discolouration [Unknown]
  - Lack of injection site rotation [Unknown]
  - Device issue [Unknown]
  - Injection site pain [Unknown]

NARRATIVE: CASE EVENT DATE: 201912
